FAERS Safety Report 5637274-5 (Version None)
Quarter: 2008Q1

REPORT INFORMATION
  Report Type: 
  Country: None (occurrence: None)
  Receive Date: 20080225
  Receipt Date: 20080218
  Transmission Date: 20080703
  Serious: Yes (Death)
  Sender: FDA-Public Use
  Company Number: DE-JNJFOC-20080203703

PATIENT
  Sex: Female

DRUGS (54)
  1. IMODIUM [Suspect]
     Route: 048
  2. IMODIUM [Suspect]
     Route: 048
  3. IMODIUM [Suspect]
     Indication: DIARRHOEA
     Route: 048
  4. PANTOZOL [Suspect]
     Indication: GASTROINTESTINAL DISORDER THERAPY
     Route: 048
  5. AMITRIPTYLINE HCL [Suspect]
     Indication: DEPRESSION
     Route: 048
  6. CLEXANE [Suspect]
     Route: 058
  7. CLEXANE [Suspect]
     Indication: THROMBOSIS PROPHYLAXIS
     Route: 058
  8. MYOCHOLINE [Suspect]
     Indication: BLADDER DISORDER
     Route: 048
  9. BENURON [Suspect]
     Route: 054
  10. BENURON [Suspect]
     Indication: PYREXIA
     Route: 054
  11. GLYBURIDE [Suspect]
     Indication: DIABETES MELLITUS
     Route: 048
  12. EUSAPRIM FORTE [Suspect]
     Indication: INFECTION
     Route: 048
  13. BENURON [Suspect]
     Route: 048
  14. BENURON [Suspect]
     Route: 048
  15. BENURON [Suspect]
     Route: 048
  16. RIOPAN [Suspect]
     Route: 048
  17. RIOPAN [Suspect]
     Indication: ABDOMINAL PAIN UPPER
     Route: 048
  18. NOVALGIN [Suspect]
     Indication: PAIN
     Route: 048
  19. KONAKION [Suspect]
     Route: 048
  20. KONAKION [Suspect]
     Indication: UNEVALUABLE EVENT
     Route: 048
  21. PASPERTIN [Suspect]
     Indication: NAUSEA
     Route: 048
  22. CANDIO HERMAL [Suspect]
     Route: 065
  23. CANDIO HERMAL [Suspect]
     Indication: CANDIDIASIS
     Route: 065
  24. PANTOZOL [Suspect]
     Route: 042
  25. ROCEPHIN [Suspect]
     Indication: ANTIBIOTIC PROPHYLAXIS
     Route: 042
  26. CALCIUM [Concomitant]
     Route: 048
  27. CALCIUM [Concomitant]
     Indication: HYPOCALCAEMIA
     Route: 048
  28. MARCUMAR [Concomitant]
     Indication: THROMBOSIS
     Route: 048
  29. HAES 6% [Concomitant]
     Route: 042
  30. HAES 6% [Concomitant]
     Indication: UNEVALUABLE EVENT
     Route: 042
  31. VOLTAREN [Concomitant]
     Indication: PAIN
     Route: 048
  32. SORTIS [Concomitant]
     Indication: HYPERCHOLESTEROLAEMIA
     Route: 048
  33. MANINIL [Concomitant]
     Indication: DIABETES MELLITUS
     Route: 048
  34. SODIUM CHLORIDE [Concomitant]
     Indication: UNEVALUABLE EVENT
     Route: 042
  35. ELEKTROLYTE-153 [Concomitant]
     Route: 042
  36. ELEKTROLYTE-153 [Concomitant]
     Indication: UNEVALUABLE EVENT
     Route: 042
  37. PASPERTIN [Concomitant]
     Indication: VOMITING
     Route: 042
  38. MULTI-VITAMIN [Concomitant]
     Indication: UNEVALUABLE EVENT
     Route: 042
  39. URBASON [Concomitant]
     Route: 042
  40. URBASON [Concomitant]
     Indication: COLLAGEN DISORDER
     Route: 042
  41. XYLIT [Concomitant]
     Indication: UNEVALUABLE EVENT
     Route: 042
  42. CA-GLUCONATE [Concomitant]
     Indication: HYPOCALCAEMIA
     Route: 042
  43. AQUA AD INJECTABILE [Concomitant]
     Route: 042
  44. TPN [Concomitant]
     Route: 042
  45. TPN [Concomitant]
     Indication: UNEVALUABLE EVENT
     Route: 042
  46. ACTRAPID [Concomitant]
     Indication: DIABETES MELLITUS
     Route: 058
  47. THIOCTACID [Concomitant]
     Indication: POLYNEUROPATHY
     Route: 042
  48. CORANGIN [Concomitant]
     Indication: DYSPNOEA
     Route: 055
  49. FENISTIL [Concomitant]
     Indication: SKIN DISORDER
     Route: 048
  50. FENISTIL [Concomitant]
     Route: 042
  51. XUSAL [Concomitant]
     Indication: PRURITUS
     Route: 048
  52. DECORTIN [Concomitant]
     Indication: SKIN DISORDER
     Route: 048
  53. NOVALGIN [Concomitant]
     Route: 042
  54. AVELOX [Concomitant]
     Indication: YERSINIA INFECTION
     Route: 042

REACTIONS (4)
  - PAIN OF SKIN [None]
  - PRURITUS [None]
  - RASH [None]
  - STEVENS-JOHNSON SYNDROME [None]
